FAERS Safety Report 5482734-3 (Version None)
Quarter: 2007Q4

REPORT INFORMATION
  Report Type: 
  Country: None (occurrence: None)
  Receive Date: 20071011
  Receipt Date: 20071001
  Transmission Date: 20080405
  Serious: Yes (Death, Hospitalization, Other)
  Sender: FDA-Public Use
  Company Number: US-PFIZER INC-2007048671

PATIENT
  Sex: Male

DRUGS (2)
  1. CELEBREX [Suspect]
     Route: 048
     Dates: start: 19990601, end: 20030204
  2. BEXTRA [Suspect]
     Route: 048
     Dates: start: 20030224

REACTIONS (1)
  - MYOCARDIAL INFARCTION [None]
